FAERS Safety Report 9819156 (Version 1)
Quarter: 2014Q1

REPORT INFORMATION
  Report Type: Spontaneous
  Country: US (occurrence: US)
  Receive Date: 20140115
  Receipt Date: 20140115
  Transmission Date: 20141002
  Serious: No
  Sender: FDA-Public Use
  Company Number: US-ENDO PHARMACEUTICALS INC.-PERC20130143

PATIENT
  Sex: Female

DRUGS (1)
  1. PERCOCET 10MG/325MG [Suspect]
     Indication: SPINAL PAIN
     Dosage: 10/325 MG
     Route: 048

REACTIONS (7)
  - Malaise [Unknown]
  - Tinnitus [Unknown]
  - Visual impairment [Unknown]
  - Dizziness [Unknown]
  - Headache [Unknown]
  - Nausea [Unknown]
  - Wrong technique in drug usage process [Unknown]
